FAERS Safety Report 15119414 (Version 1)
Quarter: 2018Q3

REPORT INFORMATION
  Report Type: Spontaneous
  Country: US (occurrence: US)
  Receive Date: 20180709
  Receipt Date: 20180709
  Transmission Date: 20181010
  Serious: Yes (Other)
  Sender: FDA-Public Use
  Company Number: US-AUROBINDO-AUR-APL-2018-033599

PATIENT

DRUGS (3)
  1. VIGABATRIN. [Suspect]
     Active Substance: VIGABATRIN
     Indication: MUSCLE SPASMS
  2. PREDNISONE. [Suspect]
     Active Substance: PREDNISONE
     Indication: MUSCLE SPASMS
     Dosage: UNK
  3. CORTICOTROPIN [Suspect]
     Active Substance: CORTICOTROPIN
     Indication: MUSCLE SPASMS

REACTIONS (4)
  - Thecal sac compression [Unknown]
  - Pain in extremity [Recovered/Resolved]
  - Epidural lipomatosis [Unknown]
  - Paraplegia [Unknown]
